FAERS Safety Report 15109702 (Version 3)
Quarter: 2018Q4

REPORT INFORMATION
  Report Type: Spontaneous
  Country: NO (occurrence: NO)
  Receive Date: 20180705
  Receipt Date: 20181213
  Transmission Date: 20190204
  Serious: Yes (Hospitalization, Other)
  Sender: FDA-Public Use
  Company Number: NO-GLAXOSMITHKLINE-NO2018115239

PATIENT
  Age: 11 Year
  Sex: Male
  Weight: 46 kg

DRUGS (8)
  1. PARACETAMOL [Concomitant]
     Active Substance: ACETAMINOPHEN
     Indication: HEADACHE
  2. AERIUS (DESLORATADINE) [Concomitant]
     Active Substance: DESLORATADINE
     Indication: SEASONAL ALLERGY
     Dosage: 5 MG, UNK
     Route: 065
  3. IBUX [Suspect]
     Active Substance: IBUPROFEN
     Indication: PYREXIA
     Dosage: 200 MG, BID
     Route: 048
     Dates: start: 20180602, end: 20180603
  4. IBUX [Suspect]
     Active Substance: IBUPROFEN
     Indication: HEADACHE
  5. LIVOSTIN [Concomitant]
     Active Substance: LEVOCABASTINE HYDROCHLORIDE
     Indication: SEASONAL ALLERGY
     Dosage: 0.5 MG/ML, UNK
     Route: 065
  6. VOLTAROL [Suspect]
     Active Substance: DICLOFENAC SODIUM
     Indication: HEADACHE
  7. VOLTAROL [Suspect]
     Active Substance: DICLOFENAC SODIUM
     Indication: PYREXIA
     Dosage: 25 MG, UNK
     Route: 048
     Dates: start: 20180603, end: 20180603
  8. PARACETAMOL [Concomitant]
     Active Substance: ACETAMINOPHEN
     Indication: PYREXIA
     Dosage: 500 MG, BID
     Route: 048
     Dates: start: 20180602, end: 20180606

REACTIONS (1)
  - Acute kidney injury [Recovering/Resolving]

NARRATIVE: CASE EVENT DATE: 20180606
